FAERS Safety Report 6375149-7 (Version None)
Quarter: 2009Q3

REPORT INFORMATION
  Report Type: 
  Country: None (occurrence: None)
  Receive Date: 20090924
  Receipt Date: 20090911
  Transmission Date: 20100115
  Serious: No
  Sender: FDA-Public Use
  Company Number: US-B.I. PHARMACEUTICALS,INC./RIDGEFIELD-2009-BP-10735BP

PATIENT
  Age: 64 Year
  Sex: Female

DRUGS (3)
  1. MIRAPEX [Suspect]
     Indication: PARKINSON'S DISEASE
     Dosage: 0.5 MG
     Route: 048
     Dates: start: 20080101
  2. AZELICT [Concomitant]
     Indication: PARKINSON'S DISEASE
  3. FIORICET [Concomitant]
     Indication: MIGRAINE

REACTIONS (9)
  - ALOPECIA [None]
  - GAIT DISTURBANCE [None]
  - JOINT SWELLING [None]
  - MIDDLE INSOMNIA [None]
  - MUSCLE SPASMS [None]
  - MUSCLE TWITCHING [None]
  - MUSCULOSKELETAL STIFFNESS [None]
  - MYALGIA [None]
  - PAIN IN EXTREMITY [None]
